FAERS Safety Report 9483749 (Version 2)
Quarter: 2013Q4

REPORT INFORMATION
  Report Type: Spontaneous
  Country: JP (occurrence: JP)
  Receive Date: 20130828
  Receipt Date: 20131010
  Transmission Date: 20140711
  Serious: Yes (Death)
  Sender: FDA-Public Use
  Company Number: JP-BRISTOL-MYERS SQUIBB COMPANY-19219138

PATIENT
  Age: 67 Year
  Sex: Male
  Weight: 51 kg

DRUGS (7)
  1. ERBITUX SOLN FOR INF 5MG/ML [Suspect]
     Indication: COLON CANCER
     Route: 041
     Dates: start: 20130807, end: 20130807
  2. DECADRON [Suspect]
     Indication: PROPHYLAXIS
     Dosage: 4.95 MG
     Route: 041
     Dates: start: 20130807, end: 20130809
  3. FOSAPREPITANT [Concomitant]
     Indication: PROPHYLAXIS
     Route: 042
  4. ALOXI [Concomitant]
     Indication: PROPHYLAXIS
     Route: 041
     Dates: start: 20130807, end: 20130807
  5. CALCIUM LEVOFOLINATE [Concomitant]
     Indication: NEOPLASM MALIGNANT
     Route: 041
     Dates: start: 20130807, end: 20130808
  6. TOPOTECIN [Concomitant]
     Indication: NEOPLASM MALIGNANT
     Route: 041
     Dates: start: 20130807, end: 20130807
  7. 5-FLUOROURACIL [Concomitant]
     Indication: NEOPLASM MALIGNANT
     Route: 041
     Dates: start: 20130807, end: 20130808

REACTIONS (1)
  - Hyperglycaemia [Fatal]
